FAERS Safety Report 9540245 (Version 1)
Quarter: 2013Q3

REPORT INFORMATION
  Report Type: Report from Study
  Country: US (occurrence: US)
  Receive Date: 20130920
  Receipt Date: 20130920
  Transmission Date: 20140515
  Serious: Yes (Other)
  Sender: FDA-Public Use
  Company Number: US-PURDUE-USA-2013-0106550

PATIENT
  Age: 48 Year
  Sex: Female

DRUGS (1)
  1. OXYCONTIN (NDA 22-272) [Suspect]
     Indication: PRODUCT USED FOR UNKNOWN INDICATION
     Dosage: 40 MG, BID
     Route: 048

REACTIONS (4)
  - Hyperglycaemia [Unknown]
  - Gastrointestinal tube insertion [Unknown]
  - Ketoacidosis [Recovered/Resolved]
  - Vomiting [Not Recovered/Not Resolved]
